FAERS Safety Report 13534701 (Version 1)
Quarter: 2017Q2

REPORT INFORMATION
  Report Type: Spontaneous
  Country: US (occurrence: US)
  Receive Date: 20170511
  Receipt Date: 20170511
  Transmission Date: 20170830
  Serious: Yes (Other)
  Sender: FDA-Public Use
  Company Number: US-TORRENT-00002734

PATIENT
  Age: 85 Year
  Sex: Male

DRUGS (5)
  1. BUPROPION HYDROCHLORIDE. [Suspect]
     Active Substance: BUPROPION HYDROCHLORIDE
  2. WARFARIN [Concomitant]
     Active Substance: WARFARIN
  3. DONEPEZIL. [Suspect]
     Active Substance: DONEPEZIL
  4. SIMVASTATIN. [Concomitant]
     Active Substance: SIMVASTATIN
  5. MEMANTINE. [Suspect]
     Active Substance: MEMANTINE

REACTIONS (1)
  - Inappropriate antidiuretic hormone secretion [Recovered/Resolved]
